FAERS Safety Report 10695001 (Version 2)
Quarter: 2015Q1

REPORT INFORMATION
  Report Type: Spontaneous
  Country: US (occurrence: US)
  Receive Date: 20150107
  Receipt Date: 20150107
  Transmission Date: 20150721
  Serious: Yes (Other)
  Sender: FDA-Public Use
  Company Number: US-CELGENE-USA-2014121695

PATIENT
  Sex: Male

DRUGS (1)
  1. REVLIMID [Suspect]
     Active Substance: LENALIDOMIDE
     Indication: PLASMA CELL MYELOMA
     Dosage: 25 MILLIGRAM
     Route: 048
     Dates: start: 201411, end: 201411

REACTIONS (12)
  - Weight decreased [Unknown]
  - Ageusia [Unknown]
  - Rash [Unknown]
  - Dizziness [Unknown]
  - Vision blurred [Unknown]
  - Anosmia [Unknown]
  - Deafness [Unknown]
  - Nausea [Unknown]
  - Headache [Unknown]
  - Muscular weakness [Unknown]
  - Pruritus [Unknown]
  - Tremor [Unknown]

NARRATIVE: CASE EVENT DATE: 2014
